FAERS Safety Report 8991757 (Version 1)
Quarter: 2012Q4

REPORT INFORMATION
  Report Type: 
  Country: IN (occurrence: IN)
  Receive Date: 20121231
  Receipt Date: 20121231
  Transmission Date: 20130627
  Serious: Yes (Hospitalization)
  Sender: FDA-Public Use
  Company Number: IN-GLENMARK GENERICS INC.-2012GMK004579

PATIENT
  Age: 24 Year
  Sex: Male

DRUGS (10)
  1. ONDANSETRON [Suspect]
     Indication: NAUSEA
     Dosage: 4 mg, single
  2. ONDANSETRON [Suspect]
     Indication: GASTROENTERITIS
     Dosage: UNK
     Route: 048
  3. OFLOXACIN [Concomitant]
     Indication: GASTROENTERITIS
     Dosage: UNK
     Route: 048
  4. ORNIDAZOLE [Concomitant]
     Indication: GASTROENTERITIS
     Dosage: UNK
     Route: 048
  5. MULTIVITAMIN                       /00831701/ [Concomitant]
     Indication: GASTROENTERITIS
     Dosage: UNK
     Route: 048
  6. RIFAMPICIN [Concomitant]
     Indication: PULMONARY TUBERCULOSIS
     Dosage: UNK
  7. ISONIAZID [Concomitant]
     Indication: PULMONARY TUBERCULOSIS
     Dosage: UNK
  8. ETHAMBUTOL [Concomitant]
     Indication: PULMONARY TUBERCULOSIS
     Dosage: UNK
  9. PYRAZINAMIDE [Concomitant]
     Indication: PULMONARY TUBERCULOSIS
     Dosage: UNK
  10. COTRIMOXAZOLE [Concomitant]
     Indication: ANTIFUNGAL PROPHYLAXIS
     Dosage: UNK

REACTIONS (13)
  - Toxic epidermal necrolysis [None]
  - Erythema [None]
  - Blister [None]
  - Skin erosion [None]
  - Mucosal inflammation [None]
  - Mucosal erosion [None]
  - Nikolsky^s sign [None]
  - Ocular hyperaemia [None]
  - Conjunctival erosion [None]
  - Oral mucosal blistering [None]
  - Oral mucosal erythema [None]
  - Genital erosion [None]
  - Skin haemorrhage [None]
